FAERS Safety Report 7342759-X (Version None)
Quarter: 2011Q1

REPORT INFORMATION
  Report Type: 
  Country: None (occurrence: None)
  Receive Date: 20110301
  Receipt Date: 20110214
  Transmission Date: 20110831
  Serious: Yes (Hospitalization, Other)
  Sender: FDA-Public Use
  Company Number: DSM-2011-00209

PATIENT
  Age: 84 Year
  Sex: Female
  Weight: 66 kg

DRUGS (6)
  1. CRESTOR [Concomitant]
  2. ALDACTONE [Concomitant]
  3. SEVIKAR (OLMESARTAN MEDOXOMIL, AMLODIPINE BESILATE) (TABLET) (OLMESART [Suspect]
     Indication: HYPERTENSION
     Dosage: 40/5 MG,ORAL
     Route: 048
     Dates: start: 20100105, end: 20110111
  4. ALLOPURINOL [Concomitant]
  5. HYPERIUM (RILMENIDINE) (TABLET) (RILMENIDINE) [Concomitant]
  6. MICARDIS [Concomitant]

REACTIONS (10)
  - BRADYCARDIA [None]
  - DYSPNOEA [None]
  - RESPIRATORY RATE INCREASED [None]
  - HYPONATRAEMIA [None]
  - BLOOD PRESSURE DECREASED [None]
  - ELECTROCARDIOGRAM T WAVE AMPLITUDE DECREASED [None]
  - HYPERKALAEMIA [None]
  - VERTIGO [None]
  - BLOOD BICARBONATE DECREASED [None]
  - RENAL FAILURE ACUTE [None]
